FAERS Safety Report 9921620 (Version 1)
Quarter: 2014Q1

REPORT INFORMATION
  Report Type: Spontaneous
  Country: US (occurrence: None)
  Receive Date: 20140221
  Receipt Date: 20140221
  Transmission Date: 20141002
  Serious: Yes (Hospitalization)
  Sender: FDA-Public Use
  Company Number: None

PATIENT
  Age: 70 Year
  Sex: Female
  Weight: 80.5 kg

DRUGS (1)
  1. SYMBICORT [Suspect]
     Indication: BRONCHOSPASM
     Dosage: 2 PUFF/ INHALED,ORALLY.
     Route: 048
     Dates: start: 20140123, end: 20140125

REACTIONS (1)
  - Pancreatitis [None]
